FAERS Safety Report 4501235-X (Version None)
Quarter: 2004Q3

REPORT INFORMATION
  Report Type: 
  Country: None (occurrence: None)
  Receive Date: 20040927
  Receipt Date: 20040524
  Transmission Date: 20050211
  Serious: No
  Sender: FDA-Public Use
  Company Number: US_0405103307

PATIENT
  Age: 16 Year

DRUGS (1)
  1. STRATTERA [Suspect]

REACTIONS (2)
  - DEPRESSIVE SYMPTOM [None]
  - MANIA [None]
